FAERS Safety Report 6580859-2 (Version None)
Quarter: 2010Q1

REPORT INFORMATION
  Report Type: 
  Country: None (occurrence: None)
  Receive Date: 20100215
  Receipt Date: 20100210
  Transmission Date: 20100710
  Serious: Yes (Death, Hospitalization)
  Sender: FDA-Public Use
  Company Number: US-ELI_LILLY_AND_COMPANY-US201001003679

PATIENT
  Sex: Male
  Weight: 84.172 kg

DRUGS (3)
  1. PEMETREXED [Suspect]
     Indication: NON-SMALL CELL LUNG CANCER
     Dosage: 500 MG/M2, OTHER
     Route: 042
     Dates: start: 20091119
  2. CARBOPLATIN [Suspect]
     Indication: NON-SMALL CELL LUNG CANCER
     Dosage: 5 D/F, OTHER
     Route: 042
     Dates: start: 20091119
  3. BEVACIZUMAB [Suspect]
     Indication: NON-SMALL CELL LUNG CANCER
     Dosage: 15 MG/KG, OTHER
     Route: 042
     Dates: start: 20091119

REACTIONS (4)
  - CARDIAC FAILURE CONGESTIVE [None]
  - PNEUMONIA [None]
  - PYREXIA [None]
  - SEPSIS [None]
